FAERS Safety Report 4944094-3 (Version None)
Quarter: 2006Q1

REPORT INFORMATION
  Report Type: 
  Country: None (occurrence: None)
  Receive Date: 20060310
  Receipt Date: 20060228
  Transmission Date: 20060701
  Serious: Yes (Other)
  Sender: FDA-Public Use
  Company Number: 222045

PATIENT
  Sex: Female

DRUGS (2)
  1. RITUXAN [Suspect]
     Indication: NON-HODGKIN'S LYMPHOMA
     Dosage: X4
     Dates: start: 20020101
  2. STEROIDS (STEROID NOS) [Concomitant]

REACTIONS (5)
  - BLINDNESS UNILATERAL [None]
  - EYE SWELLING [None]
  - MALAISE [None]
  - METASTASES TO CENTRAL NERVOUS SYSTEM [None]
  - METASTASES TO EYE [None]
